FAERS Safety Report 18732606 (Version 3)
Quarter: 2021Q1

REPORT INFORMATION
  Report Type: Spontaneous
  Country: US (occurrence: US)
  Receive Date: 20210112
  Receipt Date: 20210112
  Transmission Date: 20210419
  Serious: No
  Sender: FDA-Public Use
  Company Number: US-GALDERMA-US2020048156

PATIENT
  Age: 24 Year
  Sex: Female

DRUGS (1)
  1. AKLIEF [Suspect]
     Active Substance: TRIFAROTENE
     Indication: ACNE
     Dosage: 0.005%
     Route: 061
     Dates: start: 20201005, end: 20201018

REACTIONS (8)
  - Pain of skin [Recovering/Resolving]
  - Drug ineffective [Not Recovered/Not Resolved]
  - Dry skin [Recovered/Resolved]
  - Skin exfoliation [Recovered/Resolved]
  - Rosacea [Not Recovered/Not Resolved]
  - Skin burning sensation [Recovering/Resolving]
  - Seborrhoea [Recovering/Resolving]
  - Skin discomfort [Not Recovered/Not Resolved]

NARRATIVE: CASE EVENT DATE: 2020
